FAERS Safety Report 5467553-6 (Version None)
Quarter: 2007Q3

REPORT INFORMATION
  Report Type: 
  Country: None (occurrence: None)
  Receive Date: 20070921
  Receipt Date: 20070905
  Transmission Date: 20080115
  Serious: Yes (Hospitalization)
  Sender: FDA-Public Use
  Company Number: 8026561

PATIENT
  Sex: Female

DRUGS (6)
  1. KEPPRA [Suspect]
     Indication: CONVULSION
     Dosage: 1500 MG 2/D PO
     Route: 048
     Dates: start: 20061201
  2. DILANTIN [Suspect]
     Indication: CONVULSION
     Dosage: 700 MG D/PO
     Route: 048
     Dates: start: 20061201
  3. COUMADIN [Concomitant]
  4. ZOCOR [Concomitant]
  5. LOPRESSOR [Concomitant]
  6. DIGOXIN [Concomitant]

REACTIONS (10)
  - ANTICIPATORY ANXIETY [None]
  - ANTICOAGULATION DRUG LEVEL BELOW THERAPEUTIC [None]
  - ANTICONVULSANT DRUG LEVEL BELOW THERAPEUTIC [None]
  - AURA [None]
  - CONVULSION [None]
  - DISTURBANCE IN ATTENTION [None]
  - FATIGUE [None]
  - HALLUCINATION [None]
  - OVERDOSE [None]
  - PARANOIA [None]
